FAERS Safety Report 5968562-0 (Version None)
Quarter: 2008Q4

REPORT INFORMATION
  Report Type: 
  Country: None (occurrence: None)
  Receive Date: 20081121
  Receipt Date: 20081121
  Transmission Date: 20090506
  Serious: Yes (Life-Threatening)
  Sender: FDA-Public Use
  Company Number: None

PATIENT
  Age: 56 Year
  Sex: Female
  Weight: 102.0593 kg

DRUGS (4)
  1. PROAIR HFA [Suspect]
     Indication: ASTHMA
     Dosage: 2 PUFFS 4-6 HOURS OTHER
     Route: 050
     Dates: start: 20081114, end: 20081115
  2. PROAIR HFA [Suspect]
     Indication: ASTHMA
     Dosage: 2 PUFFS 4-6 HOURS OTHER
     Route: 050
     Dates: start: 20081114, end: 20081115
  3. PROAIR HFA [Suspect]
     Indication: ASTHMA
     Dosage: 2 PUFFS 4-6 HOURS OTHER
     Route: 050
     Dates: start: 20081114, end: 20081115
  4. GATORADE LEMON LIME POWDER [Suspect]
     Indication: BACTERIAL INFECTION
     Dosage: 10 OZ 5-6 DAYS AFTER MIX PO
     Route: 048
     Dates: start: 20080830, end: 20080903

REACTIONS (7)
  - ASTHMA [None]
  - DRUG HYPERSENSITIVITY [None]
  - DRUG INEFFECTIVE [None]
  - EXPIRED DRUG ADMINISTERED [None]
  - LUNG INFECTION [None]
  - PRODUCT QUALITY ISSUE [None]
  - RESPIRATORY TRACT INFECTION BACTERIAL [None]
